FAERS Safety Report 25279704 (Version 1)
Quarter: 2025Q2

REPORT INFORMATION
  Report Type: Spontaneous
  Country: CA (occurrence: CA)
  Receive Date: 20250507
  Receipt Date: 20250507
  Transmission Date: 20250717
  Serious: Yes (Life-Threatening)
  Sender: PFIZER
  Company Number: CA-PFIZER INC-202500094515

PATIENT
  Age: 79 Year
  Sex: Male

DRUGS (5)
  1. HEPARIN SODIUM [Suspect]
     Active Substance: HEPARIN SODIUM
  2. ASPIRIN [Concomitant]
     Active Substance: ASPIRIN
  3. QUETIAPINE [Concomitant]
     Active Substance: QUETIAPINE
  4. RISPERIDONE [Concomitant]
     Active Substance: RISPERIDONE
  5. TRAZODONE [Concomitant]
     Active Substance: TRAZODONE HYDROCHLORIDE

REACTIONS (3)
  - Haemorrhage intracranial [Not Recovered/Not Resolved]
  - Headache [Not Recovered/Not Resolved]
  - Subdural haematoma [Not Recovered/Not Resolved]
